FAERS Safety Report 7626786-0 (Version None)
Quarter: 2011Q3

REPORT INFORMATION
  Report Type: 
  Country: None (occurrence: None)
  Receive Date: 20110721
  Receipt Date: 20110715
  Transmission Date: 20111222
  Serious: Yes (Death)
  Sender: FDA-Public Use
  Company Number: DK-TEVA-282222ISR

PATIENT
  Age: 77 Year
  Sex: Female

DRUGS (3)
  1. FLUCONAZOLE [Suspect]
  2. AMLODIPINE [Interacting]
     Indication: HYPERTENSION
  3. VENLAFAXINE [Concomitant]
     Indication: DEPRESSION

REACTIONS (6)
  - TOXICITY TO VARIOUS AGENTS [None]
  - ASPHYXIA [None]
  - ASTHENIA [None]
  - DRUG INTERACTION [None]
  - FALL [None]
  - DIZZINESS [None]
